FAERS Safety Report 8484986-4 (Version None)
Quarter: 2012Q3

REPORT INFORMATION
  Report Type: 
  Country: None (occurrence: None)
  Receive Date: 20120703
  Receipt Date: 20120630
  Transmission Date: 20120928
  Serious: No
  Sender: FDA-Public Use
  Company Number: US-PFIZER INC-2012157016

PATIENT
  Sex: Male
  Weight: 88.889 kg

DRUGS (1)
  1. IBUPROFEN (ADVIL) [Suspect]
     Indication: ARTHRALGIA
     Dosage: 400 MG (TWO LIQUI-GELS OF 200MG), TWICE A WEEK
     Route: 048
     Dates: end: 20120626

REACTIONS (3)
  - COUGH [None]
  - THROAT IRRITATION [None]
  - FOREIGN BODY [None]
